FAERS Safety Report 23419697 (Version 1)
Quarter: 2024Q1

REPORT INFORMATION
  Report Type: Spontaneous
  Country: CN (occurrence: CN)
  Receive Date: 20240119
  Receipt Date: 20240119
  Transmission Date: 20240410
  Serious: Yes (Hospitalization)
  Sender: FDA-Public Use
  Company Number: CN-SHANGHAI JUNSHI BIOSCIENCES CO., LTD.-CN2024009038

PATIENT

DRUGS (3)
  1. TORIPALIMAB [Suspect]
     Active Substance: TORIPALIMAB
     Indication: Vaginal cancer
     Dosage: 240 MG
     Route: 041
     Dates: start: 20231027, end: 20231028
  2. CISPLATIN [Suspect]
     Active Substance: CISPLATIN
     Indication: Vaginal cancer
     Dosage: 40 MG, WEEKLY
     Route: 041
     Dates: start: 20231013
  3. CISPLATIN [Suspect]
     Active Substance: CISPLATIN
     Dosage: 40 MG, WEEKLY
     Route: 041
     Dates: end: 20231102

REACTIONS (2)
  - Myelosuppression [Recovering/Resolving]
  - Off label use [Unknown]

NARRATIVE: CASE EVENT DATE: 20231027
